FAERS Safety Report 9135221 (Version 2)
Quarter: 2013Q2

REPORT INFORMATION
  Report Type: Spontaneous
  Country: US (occurrence: US)
  Receive Date: 20130304
  Receipt Date: 20130418
  Transmission Date: 20140414
  Serious: Yes (Other)
  Sender: FDA-Public Use
  Company Number: US-PFIZER INC-2013069406

PATIENT
  Age: 54 Year
  Sex: Male
  Weight: 83.45 kg

DRUGS (2)
  1. BENEFIX [Suspect]
     Indication: FACTOR IX DEFICIENCY
     Dosage: 30 IU/KG, WEEKLY
  2. BENEFIX [Suspect]
     Dosage: 30 IU, AS NEEDED (ON DEMAND)

REACTIONS (2)
  - Joint injury [Unknown]
  - Off label use [Unknown]
